FAERS Safety Report 12289527 (Version 1)
Quarter: 2016Q2

REPORT INFORMATION
  Report Type: Spontaneous
  Country: US (occurrence: None)
  Receive Date: 20160420
  Receipt Date: 20160420
  Transmission Date: 20160815
  Serious: Yes (Hospitalization)
  Sender: FDA-Public Use
  Company Number: None

PATIENT
  Age: 68 Year
  Sex: Male

DRUGS (6)
  1. DOXCYCLINE [Concomitant]
  2. ALENDRONATE [Concomitant]
     Active Substance: ALENDRONATE SODIUM
  3. TOBRAMYCIN 300MG AKORN [Suspect]
     Active Substance: TOBRAMYCIN
     Dosage: 300MG BID NEB
  4. FINASTERIDE. [Concomitant]
     Active Substance: FINASTERIDE
  5. IPRATROPIUM [Concomitant]
     Active Substance: IPRATROPIUM
  6. SYMBICORT [Concomitant]
     Active Substance: BUDESONIDE\FORMOTEROL FUMARATE DIHYDRATE

REACTIONS (1)
  - Hospitalisation [None]
